FAERS Safety Report 7355526-8 (Version None)
Quarter: 2011Q1

REPORT INFORMATION
  Report Type: 
  Country: None (occurrence: None)
  Receive Date: 20110316
  Receipt Date: 20110311
  Transmission Date: 20110831
  Serious: Yes (Congenital Anomaly)
  Sender: FDA-Public Use
  Company Number: A0918168A

PATIENT
  Sex: Male

DRUGS (1)
  1. PAXIL [Suspect]
     Dosage: 20MG UNKNOWN
     Route: 064
     Dates: start: 20010101

REACTIONS (2)
  - TALIPES [None]
  - DRUG EXPOSURE DURING PREGNANCY [None]
